FAERS Safety Report 5713030-4 (Version None)
Quarter: 2008Q2

REPORT INFORMATION
  Report Type: 
  Country: None (occurrence: None)
  Receive Date: 20080422
  Receipt Date: 20080414
  Transmission Date: 20081010
  Serious: Yes (Life-Threatening, Hospitalization, Other)
  Sender: FDA-Public Use
  Company Number: GR-ASTRAZENECA-2008SE01440

PATIENT
  Age: 63 Year
  Sex: Male

DRUGS (4)
  1. CRESTOR [Suspect]
     Indication: HYPERCHOLESTEROLAEMIA
     Route: 048
     Dates: start: 20080115, end: 20080220
  2. SALOSPIR [Concomitant]
     Route: 048
     Dates: end: 20080220
  3. NITRONG [Concomitant]
     Route: 048
     Dates: end: 20080220
  4. A-MEA [Concomitant]
     Route: 048
     Dates: end: 20080220

REACTIONS (2)
  - RENAL FAILURE ACUTE [None]
  - RHABDOMYOLYSIS [None]
